FAERS Safety Report 17588989 (Version 3)
Quarter: 2022Q2

REPORT INFORMATION
  Report Type: Spontaneous
  Country: BR (occurrence: BR)
  Receive Date: 20200327
  Receipt Date: 20220628
  Transmission Date: 20220721
  Serious: Yes (Hospitalization)
  Sender: FDA-Public Use
  Company Number: BR-GSKCCFAMERS-CASE-00615162_AE-36092

PATIENT

DRUGS (1)
  1. ALBUTEROL [Suspect]
     Active Substance: ALBUTEROL
     Indication: Product used for unknown indication
     Dosage: UNK, 6D

REACTIONS (3)
  - Ill-defined disorder [Recovered/Resolved]
  - Product use issue [Unknown]
  - Product prescribing issue [Unknown]
